FAERS Safety Report 15947334 (Version 2)
Quarter: 2019Q2

REPORT INFORMATION
  Report Type: Spontaneous
  Country: DE (occurrence: DE)
  Receive Date: 20190211
  Receipt Date: 20190402
  Transmission Date: 20190711
  Serious: Yes (Hospitalization, Other)
  Sender: FDA-Public Use
  Company Number: DE-PURDUE-GBR-2019-0063921

PATIENT
  Age: 58 Year
  Sex: Female
  Weight: 90 kg

DRUGS (6)
  1. MORPHINE SULFATE. [Suspect]
     Active Substance: MORPHINE SULFATE
     Indication: OSTEOARTHRITIS
     Dosage: 1 TABLET, TOTAL
     Route: 048
     Dates: start: 20190113, end: 20190113
  2. ALCOHOL. [Suspect]
     Active Substance: ALCOHOL
     Indication: PRODUCT USED FOR UNKNOWN INDICATION
     Dosage: UNKNOWN QUANTITY
     Route: 048
  3. MORPHINE SULFATE. [Suspect]
     Active Substance: MORPHINE SULFATE
     Dosage: 1 TABLET, UNK
     Route: 048
  4. MORPHINE SULFATE. [Suspect]
     Active Substance: MORPHINE SULFATE
     Dosage: 1 TABLET, TOTAL (STRENGTH 30MG)
     Route: 048
     Dates: start: 20190113, end: 20190113
  5. HYDROMORPHONE HYDROCHLORIDE. [Suspect]
     Active Substance: HYDROMORPHONE HYDROCHLORIDE
     Indication: OSTEOARTHRITIS
     Dosage: 96 MG, TOTAL
     Route: 048
     Dates: start: 20190113, end: 20190113
  6. HYDROMORPHONE HYDROCHLORIDE. [Suspect]
     Active Substance: HYDROMORPHONE HYDROCHLORIDE
     Dosage: UNK
     Route: 048

REACTIONS (9)
  - Tachycardia [Recovered/Resolved]
  - Prothrombin time prolonged [Recovered/Resolved]
  - Vomiting [Recovered/Resolved]
  - Amnesia [Recovered/Resolved]
  - Acute kidney injury [Recovered/Resolved]
  - Intentional overdose [Recovered/Resolved]
  - Systolic hypertension [Recovered/Resolved]
  - Suicide attempt [Recovered/Resolved]
  - Blood creatine phosphokinase increased [Recovered/Resolved]
